FAERS Safety Report 5287570-9 (Version None)
Quarter: 2007Q1

REPORT INFORMATION
  Report Type: 
  Country: None (occurrence: None)
  Receive Date: 20070126
  Receipt Date: 20061128
  Transmission Date: 20070707
  Serious: No
  Sender: FDA-Public Use
  Company Number: 2006CT001095

PATIENT
  Age: 52 Year
  Sex: Female
  Weight: 70.8 kg

DRUGS (9)
  1. VENTAVIS [Suspect]
     Indication: PULMONARY HYPERTENSION
     Dosage: SEE IMAGE
     Route: 055
     Dates: start: 20061120, end: 20061120
  2. VENTAVIS [Suspect]
     Indication: PULMONARY HYPERTENSION
     Dosage: SEE IMAGE
     Route: 055
     Dates: start: 20061120, end: 20061204
  3. VENTAVIS [Suspect]
     Indication: PULMONARY HYPERTENSION
     Dosage: SEE IMAGE
     Route: 055
     Dates: start: 20061204
  4. FUROSEMIDE [Concomitant]
  5. WARFARIN [Concomitant]
  6. KLOR-CON [Concomitant]
  7. TYLENOL [Concomitant]
  8. VASOTEC [Concomitant]
  9. TRACLEER [Concomitant]

REACTIONS (4)
  - COUGH [None]
  - DIARRHOEA [None]
  - HEADACHE [None]
  - PAIN IN EXTREMITY [None]
